FAERS Safety Report 4500950-1 (Version None)
Quarter: 2004Q4

REPORT INFORMATION
  Report Type: 
  Country: None (occurrence: None)
  Receive Date: 20041110
  Receipt Date: 20041020
  Transmission Date: 20050328
  Serious: Yes (Death)
  Sender: FDA-Public Use
  Company Number: 2004046464

PATIENT
  Sex: Male

DRUGS (2)
  1. PENICILLIN G PROCAINE [Suspect]
     Indication: INFLUENZA
  2. PENICILLIN G PROCAINE [Suspect]
     Indication: NASOPHARYNGITIS

REACTIONS (3)
  - NAUSEA [None]
  - PYREXIA [None]
  - URTICARIA [None]
